FAERS Safety Report 21697028 (Version 2)
Quarter: 2023Q1

REPORT INFORMATION
  Report Type: Spontaneous
  Country: US (occurrence: US)
  Receive Date: 20221208
  Receipt Date: 20230125
  Transmission Date: 20230417
  Serious: No
  Sender: FDA-Public Use
  Company Number: US-BRISTOL-MYERS SQUIBB COMPANY-2022-149924

PATIENT
  Age: 65 Year
  Sex: Female

DRUGS (2)
  1. REVLIMID [Suspect]
     Active Substance: LENALIDOMIDE
     Indication: Plasma cell myeloma
     Dosage: FREQ:21 DAYS ON AND 7 DAYS OFF
     Route: 048
     Dates: start: 20220126
  2. REVLIMID [Suspect]
     Active Substance: LENALIDOMIDE
     Dosage: FREQ:21 DAYS ON AND 7 DAYS OFF
     Route: 048
     Dates: start: 202211

REACTIONS (4)
  - Diarrhoea [Unknown]
  - Fatigue [Unknown]
  - Cognitive disorder [Unknown]
  - Platelet count decreased [Unknown]
